FAERS Safety Report 16658344 (Version 1)
Quarter: 2019Q3

REPORT INFORMATION
  Report Type: Spontaneous
  Country: US (occurrence: US)
  Receive Date: 20190801
  Receipt Date: 20190801
  Transmission Date: 20191004
  Serious: Yes (Hospitalization)
  Sender: FDA-Public Use
  Company Number: None

PATIENT
  Age: 61 Year
  Sex: Male

DRUGS (8)
  1. HUMIRA [Suspect]
     Active Substance: ADALIMUMAB
     Indication: RHEUMATOID ARTHRITIS
     Dosage: ?          OTHER FREQUENCY:EVERY OTHER WEEK;?
     Route: 058
     Dates: start: 20161104
  2. METHOTREXATE TAB 2.5 MG [Concomitant]
  3. HYDROCHLOROTHIAZIDE CAP 12.5 MG [Concomitant]
  4. FOLIC ACID TAB 1000 MG [Concomitant]
  5. LOSARTAN POT TAB 100 MG [Concomitant]
     Active Substance: LOSARTAN POTASSIUM
  6. METOPROLOL TAR TAB 25 MG [Concomitant]
  7. NIFEDIPINE TAB 30 MG ER [Concomitant]
  8. ELIQUIS TAB 5 MG [Concomitant]

REACTIONS (1)
  - Arrhythmia supraventricular [None]
